FAERS Safety Report 14782888 (Version 1)
Quarter: 2018Q2

REPORT INFORMATION
  Report Type: Spontaneous
  Country: US (occurrence: US)
  Receive Date: 20180412
  Receipt Date: 20180412
  Transmission Date: 20180711
  Serious: Yes (Other)
  Sender: FDA-Public Use
  Company Number: None

PATIENT
  Age: 25 Year
  Sex: Female
  Weight: 120.66 kg

DRUGS (6)
  1. BIOTIN [Concomitant]
     Active Substance: BIOTIN
  2. JUICE PLUS VITAMINS VEGETABLES AND FRUITS [Concomitant]
  3. FISH OIL [Concomitant]
     Active Substance: FISH OIL
  4. WOMEN^S ONE A DAY FULL VITAMIN [Concomitant]
  5. NEXPLANON [Suspect]
     Active Substance: ETONOGESTREL
     Dates: start: 20150312, end: 20180315
  6. VITAMIN B12 [Concomitant]
     Active Substance: CYANOCOBALAMIN

REACTIONS (3)
  - Complication of device removal [None]
  - Hypoaesthesia [None]
  - Cervix carcinoma stage 0 [None]

NARRATIVE: CASE EVENT DATE: 20180411
